FAERS Safety Report 6034256-9 (Version None)
Quarter: 2009Q1

REPORT INFORMATION
  Report Type: 
  Country: None (occurrence: None)
  Receive Date: 20090112
  Receipt Date: 20081231
  Transmission Date: 20090719
  Serious: Yes (Other)
  Sender: FDA-Public Use
  Company Number: US-ROCHE-606079

PATIENT
  Sex: Female

DRUGS (1)
  1. PEGASYS [Suspect]
     Indication: DRUG USE FOR UNKNOWN INDICATION
     Route: 065

REACTIONS (8)
  - ALOPECIA [None]
  - HEPATITIS C [None]
  - HEPATOMEGALY [None]
  - MUSCULOSKELETAL PAIN [None]
  - ONYCHOMADESIS [None]
  - SUICIDAL IDEATION [None]
  - THYROID DISORDER [None]
  - VOMITING [None]
